FAERS Safety Report 14342863 (Version 1)
Quarter: 2017Q4

REPORT INFORMATION
  Report Type: Spontaneous
  Country: US (occurrence: US)
  Receive Date: 20171229
  Receipt Date: 20171229
  Transmission Date: 20180321
  Serious: Yes (Disabling)
  Sender: FDA-Public Use
  Company Number: None

PATIENT
  Sex: Female
  Weight: 85.05 kg

DRUGS (2)
  1. MUCINEX DAY TIME AND NIGHT TIME [Concomitant]
  2. ZICAM (HOMEOPATHICS) [Suspect]
     Active Substance: HOMEOPATHICS
     Indication: NASOPHARYNGITIS
     Dosage: ?          QUANTITY:1 NASAL SWABS;OTHER FREQUENCY:EVERY 3 HOURS;OTHER ROUTE:INTO THE NOSE?
     Route: 045
     Dates: start: 20171227, end: 20171228

REACTIONS (1)
  - Anosmia [None]

NARRATIVE: CASE EVENT DATE: 20171227
